FAERS Safety Report 4913692-5 (Version None)
Quarter: 2006Q1

REPORT INFORMATION
  Report Type: 
  Country: None (occurrence: None)
  Receive Date: 20060214
  Receipt Date: 20060214
  Transmission Date: 20060701
  Serious: Yes (Hospitalization)
  Sender: FDA-Public Use
  Company Number: None

PATIENT
  Sex: Female
  Weight: 53.1 kg

DRUGS (2)
  1. CYTARABINE [Suspect]
     Indication: ACUTE MYELOID LEUKAEMIA
     Dosage: 1120 MG
     Dates: start: 20060123, end: 20060130
  2. DAUNORUBICIN [Suspect]
     Dosage: 210 MG
     Dates: start: 20060123, end: 20060125

REACTIONS (1)
  - PLATELET COUNT DECREASED [None]
